FAERS Safety Report 7584723-1 (Version None)
Quarter: 2011Q2

REPORT INFORMATION
  Report Type: 
  Country: None (occurrence: None)
  Receive Date: 20110630
  Receipt Date: 20110617
  Transmission Date: 20111010
  Serious: Yes (Other)
  Sender: FDA-Public Use
  Company Number: PHHY2011BR54473

PATIENT
  Sex: Female

DRUGS (1)
  1. DIOVAN HCT [Suspect]
     Dosage: 320 MG VALS AND 12.5 MG HYDR

REACTIONS (3)
  - HYPERTENSION [None]
  - THYROID DISORDER [None]
  - DEPRESSION [None]
